FAERS Safety Report 9256352 (Version 1)
Quarter: 2013Q2

REPORT INFORMATION
  Report Type: Spontaneous
  Country: FR (occurrence: FR)
  Receive Date: 20130425
  Receipt Date: 20130425
  Transmission Date: 20140414
  Serious: Yes (Other)
  Sender: FDA-Public Use
  Company Number: FR-AMGEN-FRASP2013028229

PATIENT
  Age: 52 Year
  Sex: Male

DRUGS (3)
  1. NEULASTA [Suspect]
     Indication: PRODUCT USED FOR UNKNOWN INDICATION
     Dosage: UNK
     Route: 058
     Dates: start: 20130221
  2. DOXORUBICIN [Concomitant]
     Indication: MALIGNANT FIBROUS HISTIOCYTOMA
     Dosage: UNK
     Dates: start: 20130218, end: 20130220
  3. IFOSFAMIDE [Concomitant]
     Indication: MALIGNANT FIBROUS HISTIOCYTOMA
     Dosage: UNK
     Dates: start: 20130218, end: 20130220

REACTIONS (1)
  - Phlebitis [Unknown]
